FAERS Safety Report 6253123-9 (Version None)
Quarter: 2009Q2

REPORT INFORMATION
  Report Type: 
  Country: None (occurrence: None)
  Receive Date: 20090629
  Receipt Date: 20090622
  Transmission Date: 20091009
  Serious: Yes (Other)
  Sender: FDA-Public Use
  Company Number: 2009SP013678

PATIENT
  Age: 46 Year
  Sex: Male

DRUGS (6)
  1. REBETOL [Suspect]
     Indication: DRUG USE FOR UNKNOWN INDICATION
     Dosage: PO
     Route: 048
     Dates: start: 20090220
  2. PEGASYS [Suspect]
     Indication: DRUG USE FOR UNKNOWN INDICATION
     Dates: start: 20090220
  3. HYDROCHLOROTHIAZIDE [Concomitant]
  4. LISINOPRIL [Concomitant]
     Indication: DRUG USE FOR UNKNOWN INDICATION
     Dates: start: 20090220
  5. .. [Concomitant]
  6. .. [Concomitant]

REACTIONS (2)
  - HYPERGLYCAEMIA [None]
  - VISION BLURRED [None]
